FAERS Safety Report 22301260 (Version 2)
Quarter: 2023Q4

REPORT INFORMATION
  Report Type: Spontaneous
  Country: US (occurrence: US)
  Receive Date: 20230509
  Receipt Date: 20231009
  Transmission Date: 20240109
  Serious: No
  Sender: FDA-Public Use
  Company Number: US-SA-SAC20230508000380

PATIENT
  Age: 80 Year
  Sex: Female

DRUGS (2)
  1. DUPIXENT [Suspect]
     Active Substance: DUPILUMAB
     Dosage: 300 MG, FREQUENCY: OTHER
     Route: 058
     Dates: start: 20221108
  2. GLIPIZIDE [Concomitant]
     Active Substance: GLIPIZIDE
     Dosage: UNK

REACTIONS (10)
  - Headache [Unknown]
  - Rhinorrhoea [Unknown]
  - Cough [Unknown]
  - Dyspnoea [Unknown]
  - Blood glucose decreased [Unknown]
  - Gastrointestinal disorder [Recovering/Resolving]
  - Incontinence [Unknown]
  - Depression [Unknown]
  - Asthenia [Unknown]
  - Injection site bruising [Unknown]

NARRATIVE: CASE EVENT DATE: 20230328
